FAERS Safety Report 5487325-6 (Version None)
Quarter: 2007Q4

REPORT INFORMATION
  Report Type: 
  Country: None (occurrence: None)
  Receive Date: 20071015
  Receipt Date: 20070928
  Transmission Date: 20080405
  Serious: Yes (Death, Other)
  Sender: FDA-Public Use
  Company Number: 2006JP000792

PATIENT
  Age: 3 Year
  Sex: Female

DRUGS (1)
  1. PROGRAF [Suspect]
     Indication: LIVER TRANSPLANT
     Dosage: 1.25 MG, BID, ORAL
     Route: 048
     Dates: end: 20070401

REACTIONS (2)
  - BURKITT'S LYMPHOMA [None]
  - LYMPHOPROLIFERATIVE DISORDER [None]
